FAERS Safety Report 8313792-6 (Version None)
Quarter: 2012Q2

REPORT INFORMATION
  Report Type: 
  Country: None (occurrence: None)
  Receive Date: 20120426
  Receipt Date: 20120417
  Transmission Date: 20120825
  Serious: Yes (Life-Threatening, Hospitalization)
  Sender: FDA-Public Use
  Company Number: BR-BRISTOL-MYERS SQUIBB COMPANY-16297905

PATIENT
  Age: 60 Year
  Sex: Male
  Weight: 67 kg

DRUGS (17)
  1. CISPLATIN [Suspect]
     Indication: NON-SMALL CELL LUNG CANCER
     Dosage: LAST DOSE ON 22NOV2011 INTER ON 29NOV11
     Route: 042
     Dates: start: 20111101, end: 20111227
  2. ENOXAPARIN SODIUM [Concomitant]
     Dates: start: 20111129
  3. OMEPRAZOLE [Concomitant]
     Dates: start: 20111129, end: 20111201
  4. WARFARIN SODIUM [Concomitant]
     Dates: start: 20111213
  5. CEFEPIME [Concomitant]
     Dates: start: 20111129, end: 20111130
  6. ENOXAPARIN SODIUM [Concomitant]
  7. RANITIDINE HCL [Concomitant]
     Dates: start: 20111201, end: 20111215
  8. DEXAMETHASONE [Concomitant]
     Dates: start: 20111208, end: 20111215
  9. GEMCITABINE HYDROCHLORIDE [Suspect]
     Indication: NON-SMALL CELL LUNG CANCER
     Dosage: LAST DOSE ON 22NOV2011 INTER ON 29NOV11
     Route: 042
     Dates: start: 20111101, end: 20111227
  10. NECITUMUMAB [Suspect]
     Indication: NON-SMALL CELL LUNG CANCER
     Dosage: LIQUID; LAST DOSE ON 22NOV2011 INTER ON 29NOV11
     Route: 042
     Dates: start: 20111101, end: 20111227
  11. DIPIRONA [Concomitant]
     Dates: start: 20111129, end: 20111215
  12. ONDANSETRON [Concomitant]
     Dates: start: 20111201
  13. METOCLOPRAMIDE [Concomitant]
     Dates: start: 20111201, end: 20111215
  14. FILGRASTIM [Concomitant]
     Dates: start: 20111206
  15. DEXTROSE [Concomitant]
     Dates: start: 20111129
  16. MINERAL OIL [Concomitant]
     Dosage: EMULSION
  17. MAGNESIUM SULFATE [Concomitant]
     Dosage: SULFATO DE MAGNESIO
     Dates: start: 20111201, end: 20111215

REACTIONS (3)
  - ARTERIAL OCCLUSIVE DISEASE [None]
  - DEHYDRATION [None]
  - SUPRAVENTRICULAR TACHYCARDIA [None]
